FAERS Safety Report 5563627-X (Version None)
Quarter: 2007Q4

REPORT INFORMATION
  Report Type: 
  Country: None (occurrence: None)
  Receive Date: 20071217
  Receipt Date: 20071206
  Transmission Date: 20080405
  Serious: Yes (Hospitalization)
  Sender: FDA-Public Use
  Company Number: FR-ELI_LILLY_AND_COMPANY-FR200707004509

PATIENT
  Sex: Female
  Weight: 67 kg

DRUGS (7)
  1. FORTEO [Suspect]
     Indication: OSTEOPOROSIS
     Dosage: 20 UG, DAILY (1/D)
     Route: 058
     Dates: start: 20070221, end: 20070626
  2. HYPERIUM [Concomitant]
     Indication: HYPERTENSION
     Dosage: 1 D/F, DAILY (1/D)
     Route: 048
  3. MEDIATENSYL [Concomitant]
     Indication: HYPERTENSION
     Dosage: 1 D/F, DAILY (1/D)
     Route: 048
  4. OSTRAM-VIT.D3 [Concomitant]
     Indication: OSTEOPOROSIS
     Dosage: 1 D/F, DAILY (1/D)
     Route: 048
  5. DAFLON [Concomitant]
  6. DIANTALVIC [Concomitant]
     Dosage: UNK, UNK
  7. CARTEOL [Concomitant]
     Dosage: UNK, UNK

REACTIONS (12)
  - CARDIAC FAILURE [None]
  - CHOLELITHIASIS [None]
  - CYST [None]
  - DEEP VEIN THROMBOSIS [None]
  - DIVERTICULUM [None]
  - ERYSIPELAS [None]
  - HIATUS HERNIA [None]
  - IRON DEFICIENCY ANAEMIA [None]
  - OEDEMA PERIPHERAL [None]
  - PULMONARY EMBOLISM [None]
  - PULMONARY OEDEMA [None]
  - THROMBOPHLEBITIS SUPERFICIAL [None]
